FAERS Safety Report 13176983 (Version 2)
Quarter: 2017Q3

REPORT INFORMATION
  Report Type: Report from Study
  Country: US (occurrence: US)
  Receive Date: 20170201
  Receipt Date: 20170731
  Transmission Date: 20171127
  Serious: No
  Sender: FDA-Public Use
  Company Number: US-EXELIXIS-CABO-16006786

PATIENT
  Sex: Male

DRUGS (4)
  1. CABOMETYX [Suspect]
     Active Substance: CABOZANTINIB S-MALATE
     Dosage: 60 MG X 2 DAYS, THEN SKIP A DAY AND REPEAT
     Route: 048
     Dates: start: 201608
  2. CABOMETYX [Suspect]
     Active Substance: CABOZANTINIB S-MALATE
     Indication: SIDEROBLASTIC ANAEMIA
     Dosage: 60 MG, QD
     Route: 048
     Dates: start: 20160702, end: 201608
  3. CABOMETYX [Suspect]
     Active Substance: CABOZANTINIB S-MALATE
     Dosage: 40 MG, QD
     Route: 048
  4. CABOMETYX [Suspect]
     Active Substance: CABOZANTINIB S-MALATE
     Dosage: 40 MG X 2 DAYS, THEN SKIP A DAY AND REPEAT
     Route: 048

REACTIONS (10)
  - Tongue discomfort [Unknown]
  - Oropharyngeal pain [Unknown]
  - Weight decreased [Unknown]
  - Stomatitis [Unknown]
  - Palmar-plantar erythrodysaesthesia syndrome [Not Recovered/Not Resolved]
  - Arthralgia [Unknown]
  - Burning sensation [Unknown]
  - Oral pain [Not Recovered/Not Resolved]
  - Skin ulcer [Unknown]
  - Decreased appetite [Unknown]
